FAERS Safety Report 10003932 (Version 1)
Quarter: 2014Q1

REPORT INFORMATION
  Report Type: Spontaneous
  Country: US (occurrence: US)
  Receive Date: 20140312
  Receipt Date: 20140312
  Transmission Date: 20141002
  Serious: No
  Sender: FDA-Public Use
  Company Number: US-INCYTE CORPORATION-2014IN000150

PATIENT
  Sex: Female
  Weight: 90.7 kg

DRUGS (2)
  1. JAKAFI [Suspect]
     Indication: MYELOFIBROSIS
     Dosage: 10 MG, QAM,  15 MG, QPM
     Route: 048
     Dates: start: 201208
  2. JAKAFI [Suspect]
     Indication: MYELODYSPLASTIC SYNDROME

REACTIONS (2)
  - Memory impairment [Unknown]
  - Drug dose omission [Unknown]
